APPROVED DRUG PRODUCT: APTIVUS
Active Ingredient: TIPRANAVIR
Strength: 250MG
Dosage Form/Route: CAPSULE;ORAL
Application: N021814 | Product #001
Applicant: BOEHRINGER INGELHEIM PHARMACEUTICALS INC
Approved: Jun 22, 2005 | RLD: Yes | RS: Yes | Type: RX